FAERS Safety Report 20126469 (Version 2)
Quarter: 2021Q4

REPORT INFORMATION
  Report Type: Spontaneous
  Country: JP (occurrence: JP)
  Receive Date: 20211129
  Receipt Date: 20211216
  Transmission Date: 20220303
  Serious: Yes (Death)
  Sender: FDA-Public Use
  Company Number: JP-ELI_LILLY_AND_COMPANY-JP202111003457AA

PATIENT
  Age: 67 Year
  Sex: Female

DRUGS (5)
  1. CYRAMZA [Suspect]
     Active Substance: RAMUCIRUMAB
     Indication: Hepatocellular carcinoma
     Dosage: 8 MG/KG
     Route: 041
     Dates: start: 20210804, end: 20211027
  2. PREDONINE [Suspect]
     Active Substance: PREDNISOLONE
     Indication: Autoimmune hepatitis
     Dosage: 5 MG, BID
     Route: 048
     Dates: start: 1996, end: 20211027
  3. NORVASC [Concomitant]
     Active Substance: AMLODIPINE BESYLATE
  4. SPIRONOLACTONE [Concomitant]
     Active Substance: SPIRONOLACTONE
  5. LIVACT [AMINO ACIDS NOS] [Concomitant]

REACTIONS (3)
  - Sepsis [Fatal]
  - Cellulitis [Fatal]
  - Haematoma [Recovering/Resolving]

NARRATIVE: CASE EVENT DATE: 20211027
